FAERS Safety Report 5562129-4 (Version None)
Quarter: 2007Q4

REPORT INFORMATION
  Report Type: 
  Country: None (occurrence: None)
  Receive Date: 20071215
  Receipt Date: 20061130
  Transmission Date: 20080405
  Serious: No
  Sender: FDA-Public Use
  Company Number: US-AMGEN-US195250

PATIENT
  Sex: Female
  Weight: 71 kg

DRUGS (10)
  1. ENBREL [Suspect]
     Indication: RHEUMATOID ARTHRITIS
     Route: 058
     Dates: start: 20060406
  2. ARAVA [Concomitant]
     Dates: start: 20050101
  3. CLONAZEPAM [Concomitant]
     Route: 065
  4. VITAMIN B-12 [Concomitant]
     Route: 065
  5. NEXIUM [Concomitant]
     Route: 065
  6. VYTORIN [Concomitant]
     Route: 065
  7. ASACOL [Concomitant]
     Route: 065
  8. AVALIDE [Concomitant]
     Route: 065
  9. DARVOCET [Concomitant]
     Route: 065
  10. NABUMETONE [Concomitant]
     Route: 065

REACTIONS (4)
  - DERMATITIS ALLERGIC [None]
  - MENISCUS LESION [None]
  - RASH MACULAR [None]
  - RASH PRURITIC [None]
